FAERS Safety Report 25592423 (Version 2)
Quarter: 2025Q4

REPORT INFORMATION
  Report Type: Report from Study
  Country: US (occurrence: US)
  Receive Date: 20250722
  Receipt Date: 20251105
  Transmission Date: 20260118
  Serious: Yes (Other)
  Sender: ALEXION PHARMACEUTICALS
  Company Number: US-AstraZeneca-CH-00909977A

PATIENT
  Age: 72 Year
  Sex: Female

DRUGS (2)
  1. ULTOMIRIS [Suspect]
     Active Substance: RAVULIZUMAB-CWVZ
     Indication: Atypical haemolytic uraemic syndrome
     Dosage: UNK
     Route: 065
  2. ARANESP [Concomitant]
     Active Substance: DARBEPOETIN ALFA
     Dosage: UNK
     Route: 065

REACTIONS (8)
  - Pulmonary oedema [Unknown]
  - Stenosis [Unknown]
  - Blood creatinine increased [Unknown]
  - Glomerular filtration rate abnormal [Unknown]
  - Malaise [Unknown]
  - Dehydration [Unknown]
  - Blood phosphorus decreased [Unknown]
  - White blood cell count increased [Unknown]

NARRATIVE: CASE EVENT DATE: 20250501
